FAERS Safety Report 7427830-6 (Version None)
Quarter: 2011Q2

REPORT INFORMATION
  Report Type: 
  Country: None (occurrence: None)
  Receive Date: 20110421
  Receipt Date: 20110406
  Transmission Date: 20111010
  Serious: Yes (Death, Hospitalization)
  Sender: FDA-Public Use
  Company Number: CA-CELGENEUS-028-21880-11011405

PATIENT
  Sex: Female
  Weight: 86.2 kg

DRUGS (2)
  1. REVLIMID [Suspect]
     Dosage: 10 MILLIGRAM
     Route: 048
     Dates: start: 20080526, end: 20110109
  2. ASPIRIN [Concomitant]
     Dosage: 81 MILLIGRAM
     Route: 048

REACTIONS (2)
  - NON-SMALL CELL LUNG CANCER [None]
  - PLEURAL EFFUSION [None]
